FAERS Safety Report 13368386 (Version 1)
Quarter: 2017Q1

REPORT INFORMATION
  Report Type: Report from Study
  Country: None (occurrence: US)
  Receive Date: 20170324
  Receipt Date: 20170324
  Transmission Date: 20170429
  Serious: Yes (Hospitalization)
  Sender: FDA-Public Use
  Company Number: US-ABBVIE-17K-163-1918460-00

PATIENT
  Sex: Female

DRUGS (2)
  1. HUMIRA [Suspect]
     Active Substance: ADALIMUMAB
     Route: 058
     Dates: start: 20170206
  2. HUMIRA [Suspect]
     Active Substance: ADALIMUMAB
     Indication: RHEUMATOID ARTHRITIS
     Route: 058
     Dates: start: 200801, end: 201609

REACTIONS (5)
  - Rheumatoid arthritis [Recovering/Resolving]
  - Hepatic cirrhosis [Unknown]
  - Pleural effusion [Recovering/Resolving]
  - Intra-abdominal fluid collection [Recovering/Resolving]
  - Dyspnoea [Recovering/Resolving]
